FAERS Safety Report 8470909-0 (Version None)
Quarter: 2012Q2

REPORT INFORMATION
  Report Type: 
  Country: None (occurrence: None)
  Receive Date: 20120323
  Receipt Date: 20110812
  Transmission Date: 20120825
  Serious: Yes (Other)
  Sender: FDA-Public Use
  Company Number: 163-21880-11081685

PATIENT
  Age: 69 Year
  Sex: Female
  Weight: 82.8 kg

DRUGS (6)
  1. NEXIUM [Concomitant]
  2. ZOLOFT [Concomitant]
  3. REVLIMID [Suspect]
     Indication: MYELODYSPLASTIC SYNDROME
     Dosage: 10 MG, 1 IN 1 D, PO
     Route: 048
     Dates: start: 20110310, end: 20110808
  4. RALOXIFINE (RALOXIFENE) [Concomitant]
  5. LOMOTIL [Concomitant]
  6. DECITABINE (DECITABINE) [Concomitant]

REACTIONS (2)
  - LEUKOPENIA [None]
  - NEUTROPENIA [None]
